FAERS Safety Report 5002231-9 (Version None)
Quarter: 2006Q2

REPORT INFORMATION
  Report Type: 
  Country: None (occurrence: None)
  Receive Date: 20060510
  Receipt Date: 20060427
  Transmission Date: 20061013
  Serious: Yes (Hospitalization, Other)
  Sender: FDA-Public Use
  Company Number: 2005156889

PATIENT
  Age: 44 Year
  Sex: Male
  Weight: 98.4306 kg

DRUGS (5)
  1. VIAGRA [Suspect]
     Indication: ERECTILE DYSFUNCTION
     Dosage: 100 MG
  2. ZOCOR [Concomitant]
  3. VITAMINS (VITAMINS) [Concomitant]
  4. SAW PALMETTO (SAW PALMETTO) [Concomitant]
  5. ENALAPRIL [Suspect]
     Indication: HYPERTENSION
     Dosage: 2.5 MG
     Dates: start: 20050101

REACTIONS (11)
  - BILIARY TRACT DISORDER [None]
  - DRUG EFFECT DECREASED [None]
  - DRUG INEFFECTIVE [None]
  - DRUG INTERACTION [None]
  - HEADACHE [None]
  - HYPERPLASTIC CHOLECYSTOPATHY [None]
  - HYPERTENSION [None]
  - NASAL CONGESTION [None]
  - NAUSEA [None]
  - PHOTOPHOBIA [None]
  - SUBDURAL HAEMATOMA [None]
